FAERS Safety Report 18480130 (Version 1)
Quarter: 2020Q4

REPORT INFORMATION
  Report Type: Spontaneous
  Country: CN (occurrence: CN)
  Receive Date: 20201109
  Receipt Date: 20201109
  Transmission Date: 20210114
  Serious: Yes (Death)
  Sender: FDA-Public Use
  Company Number: CN-CELGENEUS-CHN-20201100756

PATIENT
  Age: 48 Year
  Sex: Male
  Weight: 88 kg

DRUGS (6)
  1. GEMCITABINE. [Concomitant]
     Active Substance: GEMCITABINE
     Dosage: 2110 MILLIGRAM
     Route: 041
     Dates: start: 2018
  2. ABRAXANE [Suspect]
     Active Substance: PACLITAXEL
     Dosage: 264 MILLIGRAM
     Route: 041
     Dates: start: 2018
  3. ABRAXANE [Suspect]
     Active Substance: PACLITAXEL
     Dosage: 211 MILLIGRAM
     Route: 041
     Dates: start: 20180807, end: 20180824
  4. GEMCITABINE. [Concomitant]
     Active Substance: GEMCITABINE
     Dosage: 1688 MILLIGRAM
     Route: 041
     Dates: start: 20180807, end: 20180824
  5. ABRAXANE [Suspect]
     Active Substance: PACLITAXEL
     Indication: PANCREATIC CARCINOMA METASTATIC
     Dosage: 211 MILLIGRAM
     Route: 041
     Dates: start: 20180727, end: 20180824
  6. GEMCITABINE. [Concomitant]
     Active Substance: GEMCITABINE
     Indication: PANCREATIC CARCINOMA METASTATIC
     Dosage: 1688 MILLIGRAM
     Route: 041
     Dates: start: 20180727

REACTIONS (2)
  - Gastrointestinal haemorrhage [Fatal]
  - Shock haemorrhagic [Fatal]

NARRATIVE: CASE EVENT DATE: 20180826
